FAERS Safety Report 9973175 (Version 2)
Quarter: 2014Q1

REPORT INFORMATION
  Report Type: Report from Study
  Country: US (occurrence: US)
  Receive Date: 20140306
  Receipt Date: 20140306
  Transmission Date: 20141002
  Serious: Yes (Hospitalization)
  Sender: FDA-Public Use
  Company Number: US-ABBVIE-13P-163-1129739-00

PATIENT
  Age: 38 Year
  Sex: Female

DRUGS (5)
  1. HUMIRA [Suspect]
     Indication: CROHN^S DISEASE
     Route: 058
     Dates: start: 20130328
  2. HUMIRA [Suspect]
     Route: 058
     Dates: start: 201308
  3. RESTORIL [Concomitant]
     Indication: INSOMNIA
     Dosage: QHS PRN
  4. PERCOCET [Concomitant]
     Indication: PAIN
     Dosage: PRN
  5. SOMA [Concomitant]
     Indication: PAIN
     Dosage: 325 OR 350 MG PRN

REACTIONS (3)
  - Gastrointestinal inflammation [Recovering/Resolving]
  - Drug effect decreased [Unknown]
  - Paraesthesia [Unknown]
